FAERS Safety Report 15205986 (Version 1)
Quarter: 2018Q3

REPORT INFORMATION
  Report Type: Spontaneous
  Country: US (occurrence: US)
  Receive Date: 20180727
  Receipt Date: 20180727
  Transmission Date: 20181010
  Serious: No
  Sender: FDA-Public Use
  Company Number: US-STRIDES ARCOLAB LIMITED-2017SP011079

PATIENT

DRUGS (2)
  1. RANITIDINE. [Suspect]
     Active Substance: RANITIDINE
     Indication: GASTROOESOPHAGEAL REFLUX DISEASE
     Dosage: 150 MG, BID
     Route: 065
  2. RANITIDINE. [Suspect]
     Active Substance: RANITIDINE
     Dosage: 75 MG, BID
     Route: 065

REACTIONS (2)
  - Rash [Recovered/Resolved]
  - Alopecia [Not Recovered/Not Resolved]
